FAERS Safety Report 25215885 (Version 1)
Quarter: 2025Q2

REPORT INFORMATION
  Report Type: Spontaneous
  Country: US (occurrence: US)
  Receive Date: 20250418
  Receipt Date: 20250418
  Transmission Date: 20250717
  Serious: Yes (Hospitalization)
  Sender: MYLAN
  Company Number: US-MYLANLABS-2025M1033704

PATIENT
  Age: 32 Year
  Sex: Male

DRUGS (2)
  1. BUDESONIDE [Suspect]
     Active Substance: BUDESONIDE
     Indication: Eosinophilic oesophagitis
     Dosage: 2 MILLIGRAM, QD
  2. FLUTICASONE [Suspect]
     Active Substance: FLUTICASONE
     Indication: Eosinophilic oesophagitis

REACTIONS (1)
  - Drug ineffective [Unknown]
